FAERS Safety Report 12947003 (Version 1)
Quarter: 2016Q4

REPORT INFORMATION
  Report Type: Spontaneous
  Country: US (occurrence: US)
  Receive Date: 20161116
  Receipt Date: 20161116
  Transmission Date: 20170207
  Serious: No
  Sender: FDA-Public Use
  Company Number: None

PATIENT
  Age: 74 Year
  Sex: Female

DRUGS (1)
  1. EMEND (FOSAPREPITANT DIMEGLUMINE) [Suspect]
     Active Substance: FOSAPREPITANT DIMEGLUMINE
     Indication: NAUSEA
     Dosage: 150MG ONCE IVPB
     Route: 042
     Dates: start: 20161014

REACTIONS (3)
  - Infusion related reaction [None]
  - Dyspnoea [None]
  - Erythema [None]

NARRATIVE: CASE EVENT DATE: 20161014
